FAERS Safety Report 21289815 (Version 1)
Quarter: 2022Q3

REPORT INFORMATION
  Report Type: Spontaneous
  Country: US (occurrence: US)
  Receive Date: 20220902
  Receipt Date: 20220902
  Transmission Date: 20221027
  Serious: Yes (Other)
  Sender: FDA-Public Use
  Company Number: US-AMGEN-USASP2022148287

PATIENT
  Age: 70 Year
  Sex: Female

DRUGS (11)
  1. REPATHA [Suspect]
     Active Substance: EVOLOCUMAB
     Indication: Blood cholesterol abnormal
     Dosage: 140 MILLIGRAM, Q2WK
     Route: 065
     Dates: start: 202101
  2. MAGNESIUM [Concomitant]
     Active Substance: MAGNESIUM
  3. COENZYME Q10 [Concomitant]
     Active Substance: DIETARY SUPPLEMENT\UBIDECARENONE
  4. Triple Flex [Concomitant]
  5. ASPIRIN [Concomitant]
     Active Substance: ASPIRIN
  6. COLLAGEN [Concomitant]
     Active Substance: COLLAGEN
  7. CALCIUM CITRATE [Concomitant]
     Active Substance: CALCIUM CITRATE
  8. MATURE MULTIVITAMINS [Concomitant]
  9. HERBALS\TURMERIC [Concomitant]
     Active Substance: HERBALS\TURMERIC
  10. WELLBUTRIN [Concomitant]
     Active Substance: BUPROPION HYDROCHLORIDE
  11. VITAMIN D [Concomitant]
     Active Substance: VITAMIN D NOS
     Dosage: 3 TIMES WEEKLY

REACTIONS (5)
  - Syncope [Unknown]
  - Rhinorrhoea [Unknown]
  - Heart rate increased [Unknown]
  - Hot flush [Unknown]
  - Asthenia [Unknown]

NARRATIVE: CASE EVENT DATE: 20210101
